FAERS Safety Report 16298842 (Version 2)
Quarter: 2021Q1

REPORT INFORMATION
  Report Type: Spontaneous
  Country: US (occurrence: US)
  Receive Date: 20190510
  Receipt Date: 20210203
  Transmission Date: 20210419
  Serious: Yes (Other)
  Sender: FDA-Public Use
  Company Number: US-ASTRAZENECA-2019SE67266

PATIENT
  Age: 24414 Day
  Sex: Male
  Weight: 77.1 kg

DRUGS (54)
  1. CYCLOBENZAPRINE. [Concomitant]
     Active Substance: CYCLOBENZAPRINE
     Dosage: 2 TABLETS DAILY
     Dates: start: 1997, end: 2001
  2. CIPROFLOXACIN. [Concomitant]
     Active Substance: CIPROFLOXACIN
     Dosage: 2 TABLETS DAILY
     Dates: start: 1997, end: 2001
  3. VALSARTAN. [Concomitant]
     Active Substance: VALSARTAN
     Dosage: 2 TABLETS DAILY
     Dates: start: 1997, end: 2001
  4. PERCOCET [Concomitant]
     Active Substance: ACETAMINOPHEN\OXYCODONE HYDROCHLORIDE
     Dosage: 2 TABLETS DAILY
     Dates: start: 1997, end: 2001
  5. VITAMIN D [Concomitant]
     Active Substance: VITAMIN D NOS
     Indication: MINERAL SUPPLEMENTATION
     Dates: start: 2011
  6. CLONIDINE. [Concomitant]
     Active Substance: CLONIDINE
     Dosage: 2 TABLETS DAILY
     Dates: start: 1997, end: 2001
  7. CARVEDILOL. [Concomitant]
     Active Substance: CARVEDILOL
     Dosage: 2 TABLETS DAILY
     Dates: start: 1997, end: 2001
  8. VOLTAREN [Concomitant]
     Active Substance: DICLOFENAC SODIUM
     Dosage: 2 TABLETS DAILY
     Dates: start: 1997, end: 2001
  9. LYRICA [Concomitant]
     Active Substance: PREGABALIN
     Dosage: 2 TABLETS DAILY
     Dates: start: 1997, end: 2001
  10. TIZANIDINE. [Concomitant]
     Active Substance: TIZANIDINE
     Dosage: 2 TABLETS DAILY
     Dates: start: 1997, end: 2001
  11. PREVACID 24 HR [Suspect]
     Active Substance: LANSOPRAZOLE
     Route: 065
  12. ALLOPURINOL. [Concomitant]
     Active Substance: ALLOPURINOL
     Indication: GOUT
     Dates: start: 2000
  13. FAMOTIDINE. [Concomitant]
     Active Substance: FAMOTIDINE
     Dates: start: 2018
  14. TRIAMT/HCTZ [Concomitant]
     Active Substance: HYDROCHLOROTHIAZIDE\TRIAMTERENE
     Dosage: 2 TABLETS DAILY
     Dates: start: 1997, end: 2001
  15. AMLODIPINE [Concomitant]
     Active Substance: AMLODIPINE BESYLATE
     Dosage: 2 TABLETS DAILY
     Dates: start: 1997, end: 2001
  16. CIPROFLOXACIN. [Concomitant]
     Active Substance: CIPROFLOXACIN
     Dosage: 2 TABLETS DAILY
     Dates: start: 1997, end: 2001
  17. NEXIUM [Suspect]
     Active Substance: ESOMEPRAZOLE MAGNESIUM
     Indication: GASTROOESOPHAGEAL REFLUX DISEASE
     Dosage: GENERIC
     Route: 065
     Dates: start: 201501
  18. ROSUVASTATIN. [Concomitant]
     Active Substance: ROSUVASTATIN
     Indication: BLOOD CHOLESTEROL INCREASED
     Dates: start: 2010
  19. FUROSEMIDE. [Concomitant]
     Active Substance: FUROSEMIDE
     Indication: FLUID RETENTION
     Dates: start: 201506, end: 201805
  20. PEPCID [Concomitant]
     Active Substance: FAMOTIDINE
     Dates: start: 2018
  21. METOPROLOL. [Concomitant]
     Active Substance: METOPROLOL
     Dosage: 2 TABLETS DAILY
     Dates: start: 1997, end: 2001
  22. GABAPENTIN. [Concomitant]
     Active Substance: GABAPENTIN
     Dosage: 2 TABLETS DAILY
     Dates: start: 1997, end: 2001
  23. CALCITRIOL. [Concomitant]
     Active Substance: CALCITRIOL
     Dosage: 2 TABLETS DAILY
     Dates: start: 1997, end: 2001
  24. TADALAFIL. [Concomitant]
     Active Substance: TADALAFIL
     Dosage: 2 TABLETS DAILY
     Dates: start: 1997, end: 2001
  25. NEXIUM 24HR [Suspect]
     Active Substance: ESOMEPRAZOLE MAGNESIUM
     Indication: GASTROOESOPHAGEAL REFLUX DISEASE
     Dosage: MEDICAL
     Route: 048
     Dates: start: 20180803
  26. PRILOSEC OTC [Suspect]
     Active Substance: OMEPRAZOLE MAGNESIUM
     Route: 048
  27. LABETALOL [Concomitant]
     Active Substance: LABETALOL\LABETALOL HYDROCHLORIDE
     Indication: BLOOD PRESSURE MEASUREMENT
     Dates: start: 2008
  28. SEVELAMER [Concomitant]
     Active Substance: SEVELAMER
     Indication: BLOOD PHOSPHORUS DECREASED
     Dates: start: 2019
  29. TORESMIDE [Concomitant]
     Indication: FLUID RETENTION
     Dates: start: 2019
  30. BABY ASPIRIN [Concomitant]
     Active Substance: ASPIRIN
     Indication: MYOCARDIAL INFARCTION
     Dates: start: 1998
  31. ALKA?SELTZER [Concomitant]
     Active Substance: ANHYDROUS CITRIC ACID\ASPIRIN\SODIUM BICARBONATE
     Dosage: 2 TABLETS DAILY
     Dates: start: 1997, end: 2001
  32. LORAZEPAM. [Concomitant]
     Active Substance: LORAZEPAM
     Dosage: 2 TABLETS DAILY
     Dates: start: 1997, end: 2001
  33. OXYCODONE [Concomitant]
     Active Substance: OXYCODONE
     Dosage: 2 TABLETS DAILY
     Dates: start: 1997, end: 2001
  34. TAMSULOSIN [Concomitant]
     Active Substance: TAMSULOSIN
     Dosage: 2 TABLETS DAILY
     Dates: start: 1997, end: 2001
  35. CLOPIDOGREL [Concomitant]
     Active Substance: CLOPIDOGREL BISULFATE
     Dosage: 2 TABLETS DAILY
     Dates: start: 1997, end: 2001
  36. NEXIUM [Suspect]
     Active Substance: ESOMEPRAZOLE MAGNESIUM
     Indication: GASTROOESOPHAGEAL REFLUX DISEASE
     Dosage: MEDICAL
     Route: 048
     Dates: start: 20180805
  37. METHYLPREDNISOLONE. [Concomitant]
     Active Substance: METHYLPREDNISOLONE
     Dosage: 2 TABLETS DAILY
     Dates: start: 1997, end: 2001
  38. RANITIDINE. [Concomitant]
     Active Substance: RANITIDINE
     Dosage: 2 TABLETS DAILY
     Dates: start: 1997, end: 2001
  39. PRILOSEC [Suspect]
     Active Substance: OMEPRAZOLE MAGNESIUM
     Indication: GASTROOESOPHAGEAL REFLUX DISEASE
     Route: 048
  40. LORAZEPAN [Concomitant]
     Active Substance: LORAZEPAM
     Indication: ANXIETY
     Dates: start: 20151127, end: 20160125
  41. VITAMIN B12 [Concomitant]
     Active Substance: CYANOCOBALAMIN
     Indication: ANAEMIA
     Dates: start: 2011
  42. RANITIDINE. [Concomitant]
     Active Substance: RANITIDINE
     Dates: start: 2018
  43. ENALAPRIL [Concomitant]
     Active Substance: ENALAPRIL
     Dosage: 2 TABLETS DAILY
     Dates: start: 1997, end: 2001
  44. NIACIN. [Concomitant]
     Active Substance: NIACIN
     Dosage: 2 TABLETS DAILY
     Dates: start: 1997, end: 2001
  45. NEXIUM [Suspect]
     Active Substance: ESOMEPRAZOLE MAGNESIUM
     Indication: GASTROOESOPHAGEAL REFLUX DISEASE
     Route: 048
     Dates: start: 2002, end: 201501
  46. NEXIUM 24HR [Suspect]
     Active Substance: ESOMEPRAZOLE MAGNESIUM
     Indication: GASTROOESOPHAGEAL REFLUX DISEASE
     Route: 048
  47. PREVACID [Suspect]
     Active Substance: LANSOPRAZOLE
     Indication: GASTROOESOPHAGEAL REFLUX DISEASE
     Route: 065
  48. TAVALAFIL [Concomitant]
     Indication: PROSTATE INFECTION
     Dates: start: 2019
  49. DOXAZOSIN [Concomitant]
     Active Substance: DOXAZOSIN MESYLATE
     Dosage: 2 TABLETS DAILY
     Dates: start: 1997, end: 2001
  50. DILTIAZEM. [Concomitant]
     Active Substance: DILTIAZEM
     Dosage: 2 TABLETS DAILY
     Dates: start: 1997, end: 2001
  51. PRAVASTATIN. [Concomitant]
     Active Substance: PRAVASTATIN
     Dosage: 2 TABLETS DAILY
     Dates: start: 1997, end: 2001
  52. LABETALOL [Concomitant]
     Active Substance: LABETALOL\LABETALOL HYDROCHLORIDE
     Dosage: 2 TABLETS DAILY
     Dates: start: 1997, end: 2001
  53. SUMATRIN [Concomitant]
     Dosage: 2 TABLETS DAILY
     Dates: start: 1997, end: 2001
  54. MELATONIN [Concomitant]
     Active Substance: MELATONIN
     Dosage: 2 TABLETS DAILY
     Dates: start: 1997, end: 2001

REACTIONS (8)
  - Gastrooesophageal reflux disease [Not Recovered/Not Resolved]
  - Chronic kidney disease [Not Recovered/Not Resolved]
  - Renal impairment [Unknown]
  - Hyperparathyroidism secondary [Unknown]
  - Acute kidney injury [Unknown]
  - End stage renal disease [Not Recovered/Not Resolved]
  - Nephrogenic anaemia [Unknown]
  - Renal failure [Unknown]

NARRATIVE: CASE EVENT DATE: 20180807
